FAERS Safety Report 9399428 (Version 3)
Quarter: 2013Q4

REPORT INFORMATION
  Report Type: Spontaneous
  Country: JP (occurrence: JP)
  Receive Date: 20130715
  Receipt Date: 20131129
  Transmission Date: 20140711
  Serious: Yes (Hospitalization)
  Sender: FDA-Public Use
  Company Number: JP-SANOFI-AVENTIS-2013SA069326

PATIENT
  Age: 48 Year
  Sex: Male
  Weight: 60 kg

DRUGS (4)
  1. ITANGO PEN [Suspect]
     Indication: DEVICE THERAPY
  2. LANTUS [Suspect]
     Indication: TYPE 1 DIABETES MELLITUS
     Dosage: DOSE:14 UNIT(S)
     Route: 058
  3. LANTUS [Suspect]
     Indication: TYPE 1 DIABETES MELLITUS
     Dosage: DOSE:14 UNIT(S)
     Route: 058
  4. HUMALOG [Concomitant]
     Dosage: DOSE:8 UNIT(S)
     Route: 058

REACTIONS (5)
  - Diabetic ketoacidosis [Recovering/Resolving]
  - Nausea [Recovering/Resolving]
  - Vomiting [Recovering/Resolving]
  - Blood pressure decreased [Recovering/Resolving]
  - Heart rate increased [Recovering/Resolving]
